FAERS Safety Report 16309769 (Version 1)
Quarter: 2019Q2

REPORT INFORMATION
  Report Type: Report from Study
  Country: CA (occurrence: CA)
  Receive Date: 20190514
  Receipt Date: 20190514
  Transmission Date: 20190711
  Serious: Yes (Other)
  Sender: FDA-Public Use
  Company Number: PHHY2018CA100913

PATIENT
  Sex: Female

DRUGS (9)
  1. VENTOLIN [Concomitant]
     Active Substance: ALBUTEROL SULFATE
     Indication: ASTHMA
     Dosage: 2 DF, PRN
     Route: 055
     Dates: start: 2013
  2. IRBESARTAN SANDOZ [Suspect]
     Active Substance: IRBESARTAN
     Indication: HYPERTENSION
     Dosage: 1 DF, QD
     Route: 048
     Dates: start: 2017
  3. PREGABALIN SANDOZ [Suspect]
     Active Substance: PREGABALIN
     Indication: PAIN IN EXTREMITY
     Dosage: 1 DF, BID
     Route: 048
     Dates: start: 2017
  4. ZENHALE [Concomitant]
     Active Substance: FORMOTEROL FUMARATE\MOMETASONE FUROATE
     Indication: ASTHMA
     Dosage: 1 DF, BID
     Route: 055
     Dates: start: 2013
  5. TEVA PANTOPRAZOLE [Concomitant]
     Indication: GASTROOESOPHAGEAL REFLUX DISEASE
     Dosage: 1 DF, QD
     Route: 048
     Dates: start: 2017
  6. SYNTHROID [Concomitant]
     Active Substance: LEVOTHYROXINE SODIUM
     Indication: HYPOTHYROIDISM
     Dosage: 1 DF, QD
     Route: 048
     Dates: start: 2017
  7. PRAMIPEXOLE SANDOZ [Suspect]
     Active Substance: PRAMIPEXOLE
     Indication: PAIN IN EXTREMITY
     Dosage: 1 DF, BID
     Route: 048
     Dates: start: 2017
  8. CICLESONIDE [Concomitant]
     Active Substance: CICLESONIDE
     Indication: ASTHMA
     Dosage: 1 DF, QD
     Route: 055
     Dates: start: 2013
  9. AURO METFORMIN [Concomitant]
     Indication: TYPE 2 DIABETES MELLITUS
     Dosage: 1 DF, BID
     Route: 048
     Dates: start: 2017

REACTIONS (13)
  - Secretion discharge [Unknown]
  - Sense of oppression [Unknown]
  - Productive cough [Unknown]
  - Dyspnoea [Unknown]
  - Bronchitis [Unknown]
  - Cough [Unknown]
  - Asthma [Unknown]
  - Wheezing [Unknown]
  - Atrial fibrillation [Unknown]
  - Middle insomnia [Unknown]
  - Breath sounds abnormal [Unknown]
  - Bronchospasm [Unknown]
  - Dyspnoea exertional [Unknown]
